FAERS Safety Report 20179532 (Version 1)
Quarter: 2021Q4

REPORT INFORMATION
  Report Type: Report from Study
  Country: US (occurrence: US)
  Receive Date: 20211214
  Receipt Date: 20211214
  Transmission Date: 20220303
  Serious: Yes (Other)
  Sender: FDA-Public Use
  Company Number: US-HORIZON THERAPEUTICS-HZN-2021-007671

PATIENT

DRUGS (17)
  1. TEPEZZA [Suspect]
     Active Substance: TEPROTUMUMAB-TRBW
     Indication: Endocrine ophthalmopathy
     Dosage: 1ST INFUSION 592 MG
     Route: 065
     Dates: start: 20210722
  2. TEPEZZA [Suspect]
     Active Substance: TEPROTUMUMAB-TRBW
     Dosage: 2ND INFUSION, 1184 UNK
     Route: 065
     Dates: start: 20210812
  3. TEPEZZA [Suspect]
     Active Substance: TEPROTUMUMAB-TRBW
     Dosage: 3RD INFUSION
     Route: 065
     Dates: start: 20210902
  4. TEPEZZA [Suspect]
     Active Substance: TEPROTUMUMAB-TRBW
     Dosage: 4TH INFUSION
     Route: 065
     Dates: start: 20210923
  5. TEPEZZA [Suspect]
     Active Substance: TEPROTUMUMAB-TRBW
     Dosage: 5TH INFUSION
     Route: 065
     Dates: start: 20211014
  6. TEPEZZA [Suspect]
     Active Substance: TEPROTUMUMAB-TRBW
     Dosage: 6TH INFUSION
     Route: 065
     Dates: start: 20211104
  7. COLCHICINE [Concomitant]
     Active Substance: COLCHICINE
     Indication: Pain
     Dosage: 0.6 MG
     Route: 048
     Dates: start: 20210908, end: 20210917
  8. HYDROCORTISONE [Concomitant]
     Active Substance: HYDROCORTISONE
     Indication: Product used for unknown indication
     Dosage: 10 MG
     Dates: start: 20210811, end: 20210920
  9. PREDNISOLONE [Concomitant]
     Active Substance: PREDNISOLONE
     Indication: Product used for unknown indication
     Dosage: 1 %
     Route: 065
     Dates: start: 20210618
  10. PYRIDOSTIGMINE [Concomitant]
     Active Substance: PYRIDOSTIGMINE
     Indication: Product used for unknown indication
     Dosage: 60 MG, BID
     Route: 065
     Dates: start: 20210526, end: 20210917
  11. ONDANSETRON [Concomitant]
     Active Substance: ONDANSETRON
     Indication: Nausea
     Dosage: 4 MG
     Route: 048
     Dates: start: 20210414
  12. ALENDRONATE [Concomitant]
     Active Substance: ALENDRONATE SODIUM
     Indication: Product used for unknown indication
     Dosage: 70 MG,ONCE IN WEEK
     Route: 048
     Dates: start: 20210413
  13. FLUDROCORTISONE [Concomitant]
     Active Substance: FLUDROCORTISONE
     Indication: Product used for unknown indication
     Dosage: 0.1 MG, QD
     Route: 065
     Dates: start: 20210318
  14. EPINEPHRINE [Concomitant]
     Active Substance: EPINEPHRINE
     Indication: Hypersensitivity
     Dosage: 0.3 MG
     Route: 065
     Dates: start: 20210105
  15. CALCIUM\VITAMIN D [Concomitant]
     Active Substance: CALCIUM\VITAMIN D
     Indication: Product used for unknown indication
     Dosage: 600 TO 400 MG
     Route: 048
     Dates: start: 20080418
  16. DOCUSATE SODIUM [Concomitant]
     Active Substance: DOCUSATE SODIUM
     Indication: Product used for unknown indication
     Dosage: 250 MG, BID
     Route: 048
     Dates: start: 20210322
  17. FLUTICASONE [Concomitant]
     Active Substance: FLUTICASONE
     Indication: Product used for unknown indication
     Dosage: 50 UG, QD
     Route: 045
     Dates: start: 20190323

REACTIONS (10)
  - Diabetes mellitus [Unknown]
  - Tendonitis [Unknown]
  - Weight decreased [Unknown]
  - Constipation [Unknown]
  - Hypoacusis [Unknown]
  - Nausea [Recovered/Resolved]
  - Diarrhoea [Recovered/Resolved]
  - Muscle spasms [Unknown]
  - Glycosylated haemoglobin increased [Unknown]
  - Diplopia [Unknown]

NARRATIVE: CASE EVENT DATE: 20210821
